FAERS Safety Report 8135767-2 (Version None)
Quarter: 2012Q1

REPORT INFORMATION
  Report Type: 
  Country: None (occurrence: None)
  Receive Date: 20120214
  Receipt Date: 20120209
  Transmission Date: 20120608
  Serious: Yes (Other)
  Sender: FDA-Public Use
  Company Number: BR-SANOFI-AVENTIS-2012SA008951

PATIENT
  Age: 17 Year
  Sex: Female
  Weight: 42 kg

DRUGS (2)
  1. LANTUS [Suspect]
     Route: 058
  2. LANTUS [Suspect]
     Indication: TYPE 1 DIABETES MELLITUS
     Dosage: DOSE: 25-30 IU
     Route: 058
     Dates: start: 20020101

REACTIONS (2)
  - BLOOD GLUCOSE INCREASED [None]
  - CONVULSION [None]
